FAERS Safety Report 8262881-3 (Version None)
Quarter: 2012Q2

REPORT INFORMATION
  Report Type: 
  Country: None (occurrence: None)
  Receive Date: 20120405
  Receipt Date: 20120326
  Transmission Date: 20120825
  Serious: Yes (Congenital Anomaly)
  Sender: FDA-Public Use
  Company Number: CA-GLAXOSMITHKLINE-A0972053A

PATIENT

DRUGS (7)
  1. ONDANSETRON [Suspect]
     Indication: HYPEREMESIS GRAVIDARUM
     Route: 064
  2. THIAMINE HCL [Suspect]
     Indication: HYPEREMESIS GRAVIDARUM
     Route: 064
  3. METOCLOPRAMIDE [Suspect]
     Indication: HYPEREMESIS GRAVIDARUM
     Route: 064
  4. HYDROMORPHONE HCL [Suspect]
     Route: 064
  5. DIPHENHYDRAMINE HCL [Suspect]
     Indication: HYPEREMESIS GRAVIDARUM
     Dosage: 50MG FOUR TIMES PER DAY
     Route: 064
  6. HYDROXYZINE [Suspect]
     Indication: HYPEREMESIS GRAVIDARUM
     Dosage: 25MG FOUR TIMES PER DAY
     Route: 064
  7. MULTI-VITAMINS [Suspect]
     Indication: HYPEREMESIS GRAVIDARUM
     Route: 064

REACTIONS (2)
  - FOETAL EXPOSURE DURING PREGNANCY [None]
  - HYDROCELE [None]
